FAERS Safety Report 4682796-7 (Version None)
Quarter: 2005Q2

REPORT INFORMATION
  Report Type: 
  Country: None (occurrence: None)
  Receive Date: 20050531
  Receipt Date: 20041210
  Transmission Date: 20051028
  Serious: Yes (Other)
  Sender: FDA-Public Use
  Company Number: 200419492US

PATIENT
  Age: 39 Year
  Sex: Female
  Weight: 104.5 kg

DRUGS (5)
  1. LOVENOX [Suspect]
     Indication: PULMONARY EMBOLISM
     Dosage: 100 MG/ML Q12H SC
     Route: 058
     Dates: start: 20041204, end: 20041207
  2. WARFARIN [Concomitant]
  3. NEURONTIN [Concomitant]
  4. ELAVIL [Concomitant]
  5. THYROID (ARMOUR THYROID) [Concomitant]

REACTIONS (9)
  - CONTUSION [None]
  - DIFFICULTY IN WALKING [None]
  - ERYTHEMA [None]
  - INJECTION SITE HAEMORRHAGE [None]
  - INJECTION SITE MASS [None]
  - INJECTION SITE WARMTH [None]
  - MOTOR DYSFUNCTION [None]
  - PAIN [None]
  - THROMBOSIS [None]
